FAERS Safety Report 10788174 (Version 3)
Quarter: 2024Q2

REPORT INFORMATION
  Report Type: Other
  Country: US (occurrence: None)
  Receive Date: 20150212
  Receipt Date: 20240531
  Transmission Date: 20240716
  Serious: Yes (Other)
  Sender: FDA-Public Use
  Company Number: US-ROCHE-1535688

PATIENT

DRUGS (8)
  1. RITUXIMAB [Suspect]
     Active Substance: RITUXIMAB
     Indication: Non-Hodgkin^s lymphoma unspecified histology indolent
     Dosage: ON DAY 1
     Route: 042
  2. RITUXIMAB [Suspect]
     Active Substance: RITUXIMAB
     Dosage: MAINTENANCE DOSE: FOR PATIENTS WITCH CR AFTER INDUCTION ADMINISTERED EVERY 12 WEEKS FOR 2 YEARS AND
     Route: 042
  3. BORTEZOMIB [Suspect]
     Active Substance: BORTEZOMIB
     Indication: Non-Hodgkin^s lymphoma unspecified histology indolent
     Dosage: ON DAYS 1 AND 8
     Route: 042
  4. BORTEZOMIB [Suspect]
     Active Substance: BORTEZOMIB
     Dosage: MAITENANCE DOSE FOR PATIENTS WITH PR OR STABLE DISEASE ADMINISTERED WEEKLY FOR 4 WEEKS EVERY 6 MONTH
     Route: 065
  5. CYCLOPHOSPHAMIDE [Suspect]
     Active Substance: CYCLOPHOSPHAMIDE
     Indication: Non-Hodgkin^s lymphoma unspecified histology indolent
     Dosage: ON DAY 1
     Route: 065
  6. DOXORUBICIN [Suspect]
     Active Substance: DOXORUBICIN
     Indication: Non-Hodgkin^s lymphoma unspecified histology indolent
     Dosage: ON DAY 1
     Route: 065
  7. VINCRISTINE [Suspect]
     Active Substance: VINCRISTINE
     Indication: Non-Hodgkin^s lymphoma unspecified histology indolent
     Dosage: CAPPED AT 1.5MG/DOSE ON DAY 1
     Route: 065
  8. PREDNISONE [Suspect]
     Active Substance: PREDNISONE
     Indication: Non-Hodgkin^s lymphoma unspecified histology indolent
     Dosage: ON DAYS 1-5
     Route: 048

REACTIONS (23)
  - Neutropenia [Unknown]
  - Neuropathy peripheral [Unknown]
  - Thrombocytopenia [Unknown]
  - Anaemia [Unknown]
  - Anxiety [Unknown]
  - Vomiting [Unknown]
  - Abdominal pain [Unknown]
  - Hyperglycaemia [Unknown]
  - Hypokalaemia [Unknown]
  - Nausea [Unknown]
  - Fatigue [Unknown]
  - Depression [Unknown]
  - Cellulitis [Unknown]
  - Dehydration [Unknown]
  - Diarrhoea [Unknown]
  - Dyspnoea [Unknown]
  - Pyrexia [Unknown]
  - Hypoxia [Unknown]
  - Parotitis [Unknown]
  - Asthenia [Unknown]
  - Electrocardiogram QT prolonged [Unknown]
  - Tachycardia [Unknown]
  - Infection [Unknown]
